FAERS Safety Report 10224007 (Version 2)
Quarter: 2014Q2

REPORT INFORMATION
  Report Type: Spontaneous
  Country: US (occurrence: None)
  Receive Date: 20140605
  Receipt Date: 20140618
  Transmission Date: 20141212
  Serious: Yes (Death, Other)
  Sender: FDA-Public Use
  Company Number: ADR-2014-00937

PATIENT
  Age: 50 Year
  Sex: Male

DRUGS (4)
  1. BACLOFEN INTRATHECAL [Suspect]
     Indication: CANCER PAIN
  2. DILAUDID INTRATHECAL [Suspect]
  3. BUPIVICAINE [Suspect]
  4. CLONIDINE INTRATHECAL [Suspect]

REACTIONS (2)
  - Colon cancer metastatic [None]
  - Concomitant disease progression [None]
